FAERS Safety Report 5238053-3 (Version None)
Quarter: 2007Q1

REPORT INFORMATION
  Report Type: 
  Country: None (occurrence: None)
  Receive Date: 20070215
  Receipt Date: 20070207
  Transmission Date: 20070707
  Serious: Yes (Hospitalization)
  Sender: FDA-Public Use
  Company Number: IT-JNJFOC-20070202200

PATIENT
  Age: 65 Year
  Sex: Male

DRUGS (6)
  1. REMICADE [Suspect]
     Indication: PSORIATIC ARTHROPATHY
     Route: 042
  2. ALLOPURINOL SODIUM [Concomitant]
     Indication: BLOOD URIC ACID INCREASED
     Route: 048
  3. IDROQUARK [Concomitant]
     Indication: HYPERTENSION
     Route: 065
  4. SANDIMMUNE [Concomitant]
     Route: 065
  5. ZOCOR [Concomitant]
     Route: 065
  6. METHOTREXATE [Concomitant]
     Route: 065

REACTIONS (4)
  - DYSPNOEA [None]
  - FLUSHING [None]
  - INFUSION RELATED REACTION [None]
  - ORBITAL OEDEMA [None]
